FAERS Safety Report 10456349 (Version 3)
Quarter: 2014Q4

REPORT INFORMATION
  Report Type: Report from Study
  Country: US (occurrence: US)
  Receive Date: 20140916
  Receipt Date: 20141112
  Transmission Date: 20150528
  Serious: Yes (Death, Other)
  Sender: FDA-Public Use
  Company Number: US-AMGEN-USASP2014070105

PATIENT
  Age: 69 Year
  Sex: Female
  Weight: 62.13 kg

DRUGS (29)
  1. DIFLUCAN [Concomitant]
     Active Substance: FLUCONAZOLE
  2. SEPTRA DS [Concomitant]
     Active Substance: SULFAMETHOXAZOLE\TRIMETHOPRIM
  3. LISINOPRIL. [Concomitant]
     Active Substance: LISINOPRIL
  4. MOBIC [Concomitant]
     Active Substance: MELOXICAM
  5. NEXIUM [Concomitant]
     Active Substance: ESOMEPRAZOLE MAGNESIUM
  6. ALPRAZOLAM. [Concomitant]
     Active Substance: ALPRAZOLAM
  7. PHOS-NAK [Concomitant]
  8. METFORMIN HYDROCHLORIDE. [Concomitant]
     Active Substance: METFORMIN HYDROCHLORIDE
  9. FENTANYL. [Concomitant]
     Active Substance: FENTANYL
  10. DETROL [Concomitant]
     Active Substance: TOLTERODINE TARTRATE
  11. ZETA                               /00065701/ [Concomitant]
  12. MAG-OX [Concomitant]
  13. HYDROCHLOROTHIAZIDE. [Concomitant]
     Active Substance: HYDROCHLOROTHIAZIDE
  14. POTASSIUM [Concomitant]
     Active Substance: POTASSIUM
  15. HYDROMORPHONE HYDROCHLORIDE. [Concomitant]
     Active Substance: HYDROMORPHONE HYDROCHLORIDE
  16. POTASSIUM CHLORIDE. [Concomitant]
     Active Substance: POTASSIUM CHLORIDE
  17. TUSSIONEX PENNKINETIC [Concomitant]
     Active Substance: CHLORPHENIRAMINE\HYDROCODONE
  18. ACTOS [Concomitant]
     Active Substance: PIOGLITAZONE HYDROCHLORIDE
  19. MIRALAX [Concomitant]
     Active Substance: POLYETHYLENE GLYCOL 3350
  20. SPIRIVA [Concomitant]
     Active Substance: TIOTROPIUM BROMIDE MONOHYDRATE
  21. FLUCONAZOLE. [Concomitant]
     Active Substance: FLUCONAZOLE
  22. ONDANSETRON HYDROCHLORIDE. [Concomitant]
     Active Substance: ONDANSETRON HYDROCHLORIDE
  23. VENTOLIN HFA [Concomitant]
     Active Substance: ALBUTEROL SULFATE
  24. PROLIA [Suspect]
     Active Substance: DENOSUMAB
     Indication: OSTEOPOROSIS POSTMENOPAUSAL
     Dosage: 60 MG, Q6MO
     Route: 058
     Dates: start: 20120215
  25. KLOR-CON [Concomitant]
     Active Substance: POTASSIUM CHLORIDE
  26. MORPHINE SULPHATE [Concomitant]
     Active Substance: MORPHINE SULFATE
  27. OXYCODONE HYDROCHLORIDE. [Concomitant]
     Active Substance: OXYCODONE HYDROCHLORIDE
  28. ASPIRIN                            /00002701/ [Concomitant]
     Active Substance: ASPIRIN
  29. PRAVACHOL [Concomitant]
     Active Substance: PRAVASTATIN SODIUM

REACTIONS (16)
  - Dysphagia [Unknown]
  - Chills [Unknown]
  - Renal failure [Unknown]
  - Anaemia [Unknown]
  - Non-small cell lung cancer recurrent [Fatal]
  - Paraesthesia [Unknown]
  - Vision blurred [Unknown]
  - Decreased appetite [Unknown]
  - Hypoaesthesia [Unknown]
  - Thrombocytopenia [Unknown]
  - Pleural effusion [Unknown]
  - Performance status decreased [Unknown]
  - Dizziness [Unknown]
  - Weight decreased [Unknown]
  - Asthenia [Unknown]
  - Pericardial effusion [Unknown]
